FAERS Safety Report 14426352 (Version 3)
Quarter: 2018Q2

REPORT INFORMATION
  Report Type: Report from Study
  Country: JP (occurrence: JP)
  Receive Date: 20180123
  Receipt Date: 20180629
  Transmission Date: 20180711
  Serious: Yes (Hospitalization)
  Sender: FDA-Public Use
  Company Number: PHJP2017JP026723

PATIENT
  Age: 10 Month
  Sex: Male

DRUGS (60)
  1. FLOMOX [Suspect]
     Active Substance: CEFCAPENE PIVOXIL HYDROCHLORIDE HYDRATE
     Dosage: 60 MG, UNK
     Route: 048
     Dates: start: 20171105, end: 20171106
  2. PREVNAR 13 [Concomitant]
     Active Substance: PNEUMOCOCCAL 13-VALENT CONJUGATE VACCINE
     Dosage: 0.5 ML, QD
     Route: 058
     Dates: start: 20170227, end: 20170227
  3. HEPTAVAX [Concomitant]
     Indication: PROPHYLAXIS
     Dosage: 0.25 ML, UNK
     Route: 058
     Dates: start: 20170313, end: 20170313
  4. MUCODYNE [Concomitant]
     Active Substance: CARBOCYSTEINE
     Dosage: 4 ML, UNK
     Route: 048
     Dates: start: 20171121, end: 20171127
  5. RINDERON V [Concomitant]
     Active Substance: BETAMETHASONE VALERATE
     Indication: UPPER RESPIRATORY TRACT INFLAMMATION
     Dosage: 2 ML, UNK
     Route: 048
     Dates: start: 20170726, end: 20170727
  6. ILARIS [Suspect]
     Active Substance: CANAKINUMAB
     Dosage: 10.9 MG, QD
     Route: 058
     Dates: start: 20170530
  7. ILARIS [Suspect]
     Active Substance: CANAKINUMAB
     Dosage: 40.5 MG, QD
     Route: 058
     Dates: start: 20171107
  8. FLOMOX [Suspect]
     Active Substance: CEFCAPENE PIVOXIL HYDROCHLORIDE HYDRATE
     Indication: UPPER RESPIRATORY TRACT INFLAMMATION
     Dosage: 54 MG, UNK
     Route: 048
     Dates: start: 20170822, end: 20170824
  9. SYNAGIS [Concomitant]
     Active Substance: PALIVIZUMAB
     Dosage: 100 MG, UNK
     Route: 030
     Dates: start: 20171128, end: 20171128
  10. PREDNISOLONE. [Concomitant]
     Active Substance: PREDNISOLONE
     Indication: PRODUCT USED FOR UNKNOWN INDICATION
     Dosage: 2.5 MG, UNK
     Route: 048
     Dates: end: 20161220
  11. ASVERIN (TIPEPIDINE HIBENZATE) [Concomitant]
     Active Substance: TIPEPIDINE HIBENZATE
     Dosage: 2 ML, UNK
     Route: 048
     Dates: start: 20171121, end: 20171127
  12. MEPTIN [Concomitant]
     Active Substance: PROCATEROL HYDROCHLORIDE
     Dosage: 1.5 ML, UNK
     Route: 048
     Dates: start: 20170822, end: 20170904
  13. RINDERON V [Concomitant]
     Active Substance: BETAMETHASONE VALERATE
     Dosage: 4 ML, UNK
     Route: 048
     Dates: start: 20171121, end: 20171123
  14. ROCEPHIN [Concomitant]
     Active Substance: CEFTRIAXONE SODIUM
     Indication: PYREXIA
     Dosage: 210 MG, UNK
     Route: 042
     Dates: start: 20170301, end: 20170301
  15. ALPINY [Concomitant]
     Active Substance: ACETAMINOPHEN
     Indication: PYREXIA
     Dosage: 50 MG, UNK
     Route: 054
     Dates: start: 20170412, end: 20170412
  16. ILARIS [Suspect]
     Active Substance: CANAKINUMAB
     Dosage: 7.5 MG, QD
     Route: 058
     Dates: start: 20170207
  17. HB VACCINE [Concomitant]
     Indication: PROPHYLAXIS
     Dosage: 0.25 ML, UNK
     Route: 058
     Dates: start: 20170130, end: 20170130
  18. SYNAGIS [Concomitant]
     Active Substance: PALIVIZUMAB
     Indication: PROPHYLAXIS
     Dosage: 50 MG, UNK
     Route: 030
     Dates: start: 20161226, end: 20161226
  19. SYNAGIS [Concomitant]
     Active Substance: PALIVIZUMAB
     Dosage: 50 MG, UNK
     Route: 030
     Dates: start: 20170131, end: 20170131
  20. SYNAGIS [Concomitant]
     Active Substance: PALIVIZUMAB
     Dosage: 50 MG, UNK
     Route: 030
     Dates: start: 20170925, end: 20170925
  21. ALFAROL [Concomitant]
     Active Substance: ALFACALCIDOL
     Indication: PRODUCT USED FOR UNKNOWN INDICATION
     Dosage: 0.5 ML, UNK
     Route: 048
     Dates: end: 20170801
  22. PREDNISOLONE. [Concomitant]
     Active Substance: PREDNISOLONE
     Indication: CHRONIC INFANTILE NEUROLOGICAL CUTANEOUS AND ARTICULAR SYNDROME
     Dosage: UNK
     Route: 048
     Dates: start: 20161129, end: 20170110
  23. CLAFORAN [Concomitant]
     Active Substance: CEFOTAXIME SODIUM
     Indication: RESPIRATORY SYNCYTIAL VIRUS BRONCHIOLITIS
     Dosage: 300 MG, QD
     Route: 042
     Dates: start: 20170106, end: 20170108
  24. MUCODYNE [Concomitant]
     Active Substance: CARBOCYSTEINE
     Dosage: 3.5 ML, UNK
     Route: 048
     Dates: start: 20170822, end: 20170904
  25. ONON [Concomitant]
     Active Substance: PRANLUKAST
     Indication: RESPIRATORY SYNCYTIAL VIRUS BRONCHIOLITIS
     Dosage: 35 MG, UNK
     Route: 048
     Dates: start: 20170721, end: 20170731
  26. ROCEPHIN [Concomitant]
     Active Substance: CEFTRIAXONE SODIUM
     Dosage: 240 MG, QD
     Route: 042
     Dates: start: 20170302, end: 20170306
  27. BANAN [Concomitant]
     Active Substance: CEFPODOXIME PROXETIL
     Indication: RESPIRATORY SYNCYTIAL VIRUS BRONCHIOLITIS
     Dosage: 27 MG, QD
     Route: 048
     Dates: start: 20170108, end: 20170110
  28. OXYGEN. [Concomitant]
     Active Substance: OXYGEN
     Indication: RESPIRATORY SYNCYTIAL VIRUS BRONCHIOLITIS
     Dosage: UNK
     Route: 065
     Dates: start: 20170104, end: 20170110
  29. ILARIS [Suspect]
     Active Substance: CANAKINUMAB
     Dosage: 34.5 MG, QD
     Route: 058
     Dates: start: 20170704
  30. FLOMOX [Suspect]
     Active Substance: CEFCAPENE PIVOXIL HYDROCHLORIDE HYDRATE
     Dosage: 60 MG, UNK
     Route: 048
     Dates: start: 20171017, end: 20171026
  31. BIOFERMIN R [Concomitant]
     Active Substance: BACILLUS SUBTILIS\LACTOBACILLUS ACIDOPHILUS\STREPTOCOCCUS FAECAIS
     Dosage: 0.6 G, UNK
     Route: 048
     Dates: start: 20170918
  32. ASVERIN (TIPEPIDINE HIBENZATE) [Concomitant]
     Active Substance: TIPEPIDINE HIBENZATE
     Indication: PROPHYLAXIS
     Dosage: 6 MG, UNK
     Route: 048
     Dates: start: 20170620, end: 20170624
  33. MUCODYNE [Concomitant]
     Active Substance: CARBOCYSTEINE
     Indication: RESPIRATORY SYNCYTIAL VIRUS BRONCHIOLITIS
     Dosage: 1.8 ML, QD
     Route: 048
     Dates: start: 20170104, end: 20170117
  34. RINDERON V [Concomitant]
     Active Substance: BETAMETHASONE VALERATE
     Indication: RESPIRATORY SYNCYTIAL VIRUS BRONCHIOLITIS
     Dosage: 0.75 ML, QD
     Route: 048
     Dates: start: 20170108, end: 20170110
  35. ILARIS [Suspect]
     Active Substance: CANAKINUMAB
     Dosage: 9.5 MG, QD
     Route: 058
     Dates: start: 20170404
  36. ILARIS [Suspect]
     Active Substance: CANAKINUMAB
     Dosage: 22.5 MG, QD
     Route: 058
     Dates: start: 20170613
  37. FLOMOX [Suspect]
     Active Substance: CEFCAPENE PIVOXIL HYDROCHLORIDE HYDRATE
     Indication: IMPETIGO
     Dosage: 50 MG, UNK
     Route: 048
     Dates: start: 20170801, end: 20170806
  38. MUCODYNE-DS [Concomitant]
     Active Substance: CARBOCYSTEINE
     Indication: PROPHYLAXIS
     Dosage: 150 MG, UNK
     Route: 048
     Dates: start: 20170620, end: 20170624
  39. ONON [Concomitant]
     Active Substance: PRANLUKAST
     Indication: PROPHYLAXIS
     Dosage: 20 MG, QD
     Route: 048
     Dates: start: 20170104, end: 20170117
  40. ILARIS [Suspect]
     Active Substance: CANAKINUMAB
     Indication: CRYOPYRIN ASSOCIATED PERIODIC SYNDROME
     Dosage: 5.5 MG, QD
     Route: 058
     Dates: start: 20161216
  41. ILARIS [Suspect]
     Active Substance: CANAKINUMAB
     Dosage: 37.5 MG, UNK
     Route: 058
     Dates: start: 20171010
  42. PREVNAR 13 [Concomitant]
     Active Substance: PNEUMOCOCCAL 13-VALENT CONJUGATE VACCINE
     Indication: PROPHYLAXIS
     Dosage: 0.5 ML, QD
     Route: 058
     Dates: start: 20170123, end: 20170123
  43. SYNAGIS [Concomitant]
     Active Substance: PALIVIZUMAB
     Dosage: 65 MG, UNK
     Route: 030
     Dates: start: 20170307, end: 20170307
  44. INCREMIN [Concomitant]
     Active Substance: FERRIC PYROPHOSPHATE
     Indication: ANAEMIA NEONATAL
     Dosage: 2.5 ML, UNK
     Route: 048
     Dates: end: 20170704
  45. ASVERIN (TIPEPIDINE HIBENZATE) [Concomitant]
     Active Substance: TIPEPIDINE HIBENZATE
     Indication: RESPIRATORY SYNCYTIAL VIRUS BRONCHIOLITIS
     Dosage: 1.2 ML, QD
     Route: 048
     Dates: start: 20170104, end: 20170117
  46. ASVERIN (TIPEPIDINE HIBENZATE) [Concomitant]
     Active Substance: TIPEPIDINE HIBENZATE
     Dosage: 1.5 ML, UNK
     Route: 048
     Dates: start: 20170822, end: 20170904
  47. MEPTIN [Concomitant]
     Active Substance: PROCATEROL HYDROCHLORIDE
     Dosage: 1.5 ML, UNK
     Route: 048
     Dates: start: 20170918, end: 20171001
  48. CLARITH [Concomitant]
     Active Substance: CLARITHROMYCIN
     Indication: PROPHYLAXIS
     Dosage: 40 MG, UNK
     Route: 048
     Dates: start: 20171128
  49. ILARIS [Suspect]
     Active Substance: CANAKINUMAB
     Dosage: 36 MG, UNK
     Route: 058
     Dates: start: 20170829
  50. SYNAGIS [Concomitant]
     Active Substance: PALIVIZUMAB
     Dosage: 100 MG, UNK
     Route: 030
     Dates: start: 20171017, end: 20171017
  51. PREDNISOLONE. [Concomitant]
     Active Substance: PREDNISOLONE
     Dosage: 1.5 MG, UNK
     Route: 048
     Dates: start: 20161221, end: 20161227
  52. PREDONINE [Concomitant]
     Active Substance: PREDNISOLONE
     Indication: RESPIRATORY SYNCYTIAL VIRUS BRONCHIOLITIS
     Dosage: 9 MG, QD
     Route: 042
     Dates: start: 20170104, end: 20170108
  53. MUCODYNE [Concomitant]
     Active Substance: CARBOCYSTEINE
     Dosage: 3 ML, UNK
     Route: 048
     Dates: start: 20170721, end: 20170731
  54. MUCODYNE [Concomitant]
     Active Substance: CARBOCYSTEINE
     Dosage: 3.5 ML, UNK
     Route: 048
     Dates: start: 20170918, end: 20171001
  55. ASVERIN (TIPEPIDINE HIBENZATE) [Concomitant]
     Active Substance: TIPEPIDINE HIBENZATE
     Indication: UPPER RESPIRATORY TRACT INFLAMMATION
     Dosage: 3 ML, UNK
     Route: 048
     Dates: start: 20170721, end: 20170731
  56. MEPTIN [Concomitant]
     Active Substance: PROCATEROL HYDROCHLORIDE
     Dosage: 1.5 ML, UNK
     Route: 048
     Dates: start: 20170822, end: 20170904
  57. PREVNAR 13 [Concomitant]
     Active Substance: PNEUMOCOCCAL 13-VALENT CONJUGATE VACCINE
     Dosage: 0.5 ML, QD
     Route: 058
     Dates: start: 20170410, end: 20170410
  58. BIOFERMIN R [Concomitant]
     Active Substance: BACILLUS SUBTILIS\LACTOBACILLUS ACIDOPHILUS\STREPTOCOCCUS FAECAIS
     Indication: PROPHYLAXIS
     Dosage: 0.5 G, UNK
     Route: 048
     Dates: start: 20170301, end: 20170306
  59. MEPTIN [Concomitant]
     Active Substance: PROCATEROL HYDROCHLORIDE
     Indication: RESPIRATORY SYNCYTIAL VIRUS BRONCHIOLITIS
     Dosage: 1.2 ML, QD
     Route: 048
     Dates: start: 20170104, end: 20170117
  60. ONON [Concomitant]
     Active Substance: PRANLUKAST
     Dosage: 40 MG, UNK
     Route: 048
     Dates: start: 20170801

REACTIONS (17)
  - Adenovirus infection [Recovering/Resolving]
  - Viral infection [Unknown]
  - Impetigo [Recovering/Resolving]
  - Upper respiratory tract inflammation [Recovering/Resolving]
  - Hand-foot-and-mouth disease [Recovering/Resolving]
  - Rash [Unknown]
  - Nasopharyngitis [Unknown]
  - Pyrexia [Unknown]
  - Asthma [Recovering/Resolving]
  - Wheezing [Unknown]
  - Rhinorrhoea [Unknown]
  - Hepatic function abnormal [Recovering/Resolving]
  - Alanine aminotransferase increased [Recovering/Resolving]
  - Aspartate aminotransferase increased [Recovering/Resolving]
  - Exanthema subitum [Recovering/Resolving]
  - Cough [Unknown]
  - Oral mucosal eruption [Unknown]

NARRATIVE: CASE EVENT DATE: 20170721
